FAERS Safety Report 14463631 (Version 1)
Quarter: 2018Q1

REPORT INFORMATION
  Report Type: Spontaneous
  Country: US (occurrence: US)
  Receive Date: 20180130
  Receipt Date: 20180130
  Transmission Date: 20180509
  Serious: No
  Sender: FDA-Public Use
  Company Number: US-ACORDA-ACO_133158_2017

PATIENT
  Age: 48 Year
  Sex: Female
  Weight: 99.77 kg

DRUGS (4)
  1. AMPYRA [Suspect]
     Active Substance: DALFAMPRIDINE
     Indication: GAIT DISTURBANCE
     Dosage: 10 MG, QD
     Route: 048
     Dates: start: 201712
  2. AMPYRA [Suspect]
     Active Substance: DALFAMPRIDINE
     Indication: GAIT DISTURBANCE
     Dosage: 10 MG, BID
     Route: 048
  3. AMPYRA [Suspect]
     Active Substance: DALFAMPRIDINE
     Indication: OFF LABEL USE
     Dosage: 10 MG, BID
     Route: 048
     Dates: start: 201702
  4. AVONEX [Suspect]
     Active Substance: INTERFERON BETA-1A
     Indication: MULTIPLE SCLEROSIS
     Dosage: UNK
     Route: 065

REACTIONS (20)
  - Gastric disorder [Not Recovered/Not Resolved]
  - Drug dose omission [Recovered/Resolved]
  - Mobility decreased [Recovered/Resolved]
  - Pain in extremity [Unknown]
  - Temperature intolerance [Unknown]
  - Gait disturbance [Not Recovered/Not Resolved]
  - General physical condition abnormal [Unknown]
  - Blood pressure abnormal [Unknown]
  - Discomfort [Unknown]
  - Haemophobia [Recovered/Resolved]
  - Headache [Unknown]
  - Asthenia [Unknown]
  - Initial insomnia [Not Recovered/Not Resolved]
  - Vitamin B12 abnormal [Unknown]
  - Communication disorder [Unknown]
  - Off label use [Unknown]
  - Confusional state [Unknown]
  - Inappropriate schedule of drug administration [Recovered/Resolved]
  - Anger [Unknown]
  - Therapy cessation [Unknown]

NARRATIVE: CASE EVENT DATE: 20161215
